FAERS Safety Report 10375742 (Version 1)
Quarter: 2014Q1

REPORT INFORMATION
  Report Type: Spontaneous
  Country: US (occurrence: None)
  Receive Date: 20140306
  Receipt Date: 20140306
  Transmission Date: 20141002
  Serious: Yes (Hospitalization)
  Sender: FDA-Public Use
  Company Number: 163-21880-1312872

PATIENT
  Age: 63 Year
  Sex: Male
  Weight: 113.4 kg

DRUGS (12)
  1. REVLIMID [Suspect]
     Indication: PLASMA CELL MYELOMA
     Dosage: 10 MG, 21 IN 28 D, PO??THERAPY ?8/2012- TEMPORARILY INTERRUPTED
     Route: 048
     Dates: start: 201208
  2. ASPIRIN (ACETYLSALICYLIC ACID) [Concomitant]
  3. MVI [Concomitant]
  4. POTASSIUM CHLORIDE [Concomitant]
  5. B COMPLEX (BECOSYM FORTE) [Concomitant]
  6. LIPITOR (ATORVASTATIN) [Concomitant]
  7. CIALIS (TADALAFIL) [Concomitant]
  8. PROPRANOLOL [Concomitant]
  9. OMEPRAZOLE [Concomitant]
  10. DIOVAN (VALSARTAN) [Concomitant]
  11. LOVAZA (OMEGA-3 MARINE TRIGLYCERIDES) [Concomitant]
  12. AMLODIPINE BENAZEPRIL (AMLODIPINE BESYLATE W/BENAZEPRIL HYDROCHLOR.) [Concomitant]

REACTIONS (1)
  - Infection [None]
